FAERS Safety Report 5867461-2 (Version None)
Quarter: 2008Q3

REPORT INFORMATION
  Report Type: 
  Country: None (occurrence: None)
  Receive Date: 20080902
  Receipt Date: 20080902
  Transmission Date: 20090109
  Serious: Yes (Hospitalization)
  Sender: FDA-Public Use
  Company Number: PHEH1996US07880

PATIENT
  Sex: Male
  Weight: 133 kg

DRUGS (5)
  1. SANDIMMUNE [Suspect]
     Route: 048
     Dates: start: 19951205
  2. IMURAN [Suspect]
     Dosage: UNSPECIFIED
     Route: 065
  3. PREDNISONE TAB [Suspect]
     Dosage: UNSPECIFIED
     Route: 065
  4. ACYCLOVIR [Suspect]
     Dosage: UNSPECIFIED
     Route: 065
  5. BACTRIM [Suspect]
     Dosage: UNSPECIFIED
     Route: 065

REACTIONS (1)
  - UPPER RESPIRATORY TRACT INFECTION [None]
